FAERS Safety Report 22136904 (Version 1)
Quarter: 2023Q1

REPORT INFORMATION
  Report Type: Spontaneous
  Country: US (occurrence: US)
  Receive Date: 20230324
  Receipt Date: 20230324
  Transmission Date: 20230418
  Serious: No
  Sender: FDA-Public Use
  Company Number: LUP122-01456

PATIENT
  Sex: Female

DRUGS (1)
  1. DICYCLOMINE HYDROCHLORIDE [Suspect]
     Active Substance: DICYCLOMINE HYDROCHLORIDE
     Indication: Abdominal discomfort
     Dosage: 20 MILLIGRAM
     Route: 065

REACTIONS (2)
  - Drug ineffective [Unknown]
  - Product physical issue [Unknown]
